FAERS Safety Report 20476105 (Version 1)
Quarter: 2022Q1

REPORT INFORMATION
  Report Type: Spontaneous
  Country: US (occurrence: None)
  Receive Date: 20220215
  Receipt Date: 20220215
  Transmission Date: 20220423
  Serious: Yes (Life-Threatening, Hospitalization)
  Sender: FDA-Public Use
  Company Number: None

PATIENT
  Age: 36 Year
  Sex: Female
  Weight: 56.25 kg

DRUGS (2)
  1. CANNABIDIOL\HERBALS [Suspect]
     Active Substance: CANNABIDIOL\HERBALS
     Indication: Feeling of relaxation
     Dosage: OTHER FREQUENCY : 2 DROPPERFUL;?
     Route: 048
     Dates: start: 20220211, end: 20220211
  2. IUD NOS [Concomitant]
     Active Substance: COPPER OR LEVONORGESTREL

REACTIONS (7)
  - Incorrect dose administered by device [None]
  - Malaise [None]
  - Vomiting [None]
  - Blood pressure decreased [None]
  - Body temperature decreased [None]
  - Seizure [None]
  - Consciousness fluctuating [None]

NARRATIVE: CASE EVENT DATE: 20220211
